FAERS Safety Report 8177912-9 (Version None)
Quarter: 2012Q1

REPORT INFORMATION
  Report Type: 
  Country: None (occurrence: None)
  Receive Date: 20120130
  Receipt Date: 20110111
  Transmission Date: 20120608
  Serious: Yes (Other)
  Sender: FDA-Public Use
  Company Number: 025205

PATIENT
  Sex: Male

DRUGS (3)
  1. PERCOCET /00446701/ ( TO UNKNOWN) [Concomitant]
  2. KEPPRA [Suspect]
     Dosage: (), (500 MG QD)
     Dates: start: 20100101, end: 20110110
  3. KEPPRA [Suspect]
     Dosage: (), (500 MG QD)
     Dates: start: 20100101, end: 20100101

REACTIONS (3)
  - SUICIDAL IDEATION [None]
  - HEADACHE [None]
  - CHILLS [None]
